FAERS Safety Report 9522357 (Version 1)
Quarter: 2013Q3

REPORT INFORMATION
  Report Type: Spontaneous
  Country: US (occurrence: None)
  Receive Date: 20130911
  Receipt Date: 20130911
  Transmission Date: 20140515
  Serious: No
  Sender: FDA-Public Use
  Company Number: AEUSA201200437

PATIENT
  Sex: Male

DRUGS (4)
  1. GAMUNEX-C (10 PCT) [Suspect]
     Indication: CHRONIC INFLAMMATORY DEMYELINATING POLYRADICULONEUROPATHY
     Route: 042
  2. PARACETAMOL [Concomitant]
  3. DIPHENHYDRAMINE [Concomitant]
  4. STEROIDS [Concomitant]

REACTIONS (1)
  - Rash [None]
